FAERS Safety Report 17711361 (Version 2)
Quarter: 2022Q1

REPORT INFORMATION
  Report Type: Spontaneous
  Country: US (occurrence: US)
  Receive Date: 20200427
  Receipt Date: 20220214
  Transmission Date: 20220423
  Serious: Yes (Other)
  Sender: FDA-Public Use
  Company Number: US-PFIZER INC-2020166409

PATIENT
  Age: 69 Year
  Sex: Female
  Weight: 132.45 kg

DRUGS (2)
  1. SKELAXIN [Suspect]
     Active Substance: METAXALONE
     Indication: Pain
     Dosage: 800 MG, 3X/DAY
     Dates: start: 2015
  2. SKELAXIN [Suspect]
     Active Substance: METAXALONE
     Indication: Muscle spasms

REACTIONS (2)
  - Diabetes mellitus [Unknown]
  - Body height decreased [Unknown]
